FAERS Safety Report 13238852 (Version 1)
Quarter: 2017Q1

REPORT INFORMATION
  Report Type: Spontaneous
  Country: US (occurrence: US)
  Receive Date: 20170216
  Receipt Date: 20170216
  Transmission Date: 20170428
  Serious: No
  Sender: FDA-Public Use
  Company Number: US-009507513-1701USA012209

PATIENT
  Age: 44 Year
  Sex: Female

DRUGS (4)
  1. ASPIRIN. [Concomitant]
     Active Substance: ASPIRIN
     Indication: RHINITIS
     Dosage: 650 MG, TWICE DAILY
  2. ASPIRIN. [Concomitant]
     Active Substance: ASPIRIN
     Indication: ASTHMA
     Dosage: 325 MG, TWICE DAILY
  3. PEPCID RPD [Suspect]
     Active Substance: FAMOTIDINE
     Indication: ABDOMINAL PAIN UPPER
     Dosage: 20 MG, TWICE DAILY
  4. PEPCID RPD [Suspect]
     Active Substance: FAMOTIDINE
     Indication: DYSPEPSIA

REACTIONS (1)
  - Drug ineffective [Unknown]
